FAERS Safety Report 9742297 (Version 1)
Quarter: 2013Q4

REPORT INFORMATION
  Report Type: Spontaneous
  Country: BR (occurrence: BR)
  Receive Date: 20131210
  Receipt Date: 20131210
  Transmission Date: 20140711
  Serious: Yes (Hospitalization)
  Sender: FDA-Public Use
  Company Number: BR-SHIRE-ALL1-2013-08539

PATIENT
  Age: 18 Month
  Sex: Male

DRUGS (1)
  1. ELAPRASE [Suspect]
     Indication: PRODUCT USED FOR UNKNOWN INDICATION
     Dosage: 0.5 MG/KG, 1X/WEEK
     Route: 041
     Dates: start: 2013

REACTIONS (3)
  - Stomatitis [Recovering/Resolving]
  - Reflux gastritis [Recovering/Resolving]
  - Pyrexia [Recovering/Resolving]
